FAERS Safety Report 4709008-X (Version None)
Quarter: 2005Q3

REPORT INFORMATION
  Report Type: 
  Country: None (occurrence: None)
  Receive Date: 20050707
  Receipt Date: 20050620
  Transmission Date: 20060218
  Serious: Yes (Other)
  Sender: FDA-Public Use
  Company Number: HQWYE619122JUN05

PATIENT
  Age: 51 Year
  Sex: Female
  Weight: 90.8 kg

DRUGS (3)
  1. PREMARIN [Suspect]
     Indication: VULVOVAGINAL DRYNESS
     Dosage: 0.5 G 1X PER 1 WK, VAGINAL
     Route: 067
     Dates: start: 20040601, end: 20050401
  2. ATENOLOL [Concomitant]
  3. SYNTHROID [Concomitant]

REACTIONS (2)
  - ACTINIC KERATOSIS [None]
  - BASAL CELL CARCINOMA [None]
